FAERS Safety Report 15316219 (Version 1)
Quarter: 2018Q3

REPORT INFORMATION
  Report Type: Spontaneous
  Country: US (occurrence: US)
  Receive Date: 20180816
  Receipt Date: 20180816
  Transmission Date: 20181010
  Serious: Yes (Life-Threatening, Hospitalization, Other)
  Sender: FDA-Public Use
  Company Number: None

PATIENT
  Age: 32 Year
  Sex: Female
  Weight: 99 kg

DRUGS (5)
  1. SERTRALINE [Concomitant]
     Active Substance: SERTRALINE HYDROCHLORIDE
  2. VYVANSE [Concomitant]
     Active Substance: LISDEXAMFETAMINE DIMESYLATE
  3. CLONAZEPAM. [Concomitant]
     Active Substance: CLONAZEPAM
  4. LEVOTHYROXIN/LIOTHYRONINE 90 MG TABLETS [Suspect]
     Active Substance: LEVOTHYROXINE\LIOTHYRONINE
     Indication: HYPOTHYROIDISM
     Dosage: ?          QUANTITY:1 TABLET(S);?
     Route: 048
     Dates: start: 20140601, end: 20180814
  5. WELLBUTIN [Concomitant]

REACTIONS (13)
  - Thyroxine decreased [None]
  - Maternal drugs affecting foetus [None]
  - Selective eating disorder [None]
  - Migraine [None]
  - Respiratory disorder neonatal [None]
  - Hyperhidrosis [None]
  - Maternal exposure during pregnancy [None]
  - Tri-iodothyronine increased [None]
  - Rash [None]
  - Pregnancy [None]
  - Polyhydramnios [None]
  - Caesarean section [None]
  - Complication of pregnancy [None]

NARRATIVE: CASE EVENT DATE: 20171001
